FAERS Safety Report 17070144 (Version 2)
Quarter: 2020Q1

REPORT INFORMATION
  Report Type: Spontaneous
  Country: US (occurrence: US)
  Receive Date: 20191125
  Receipt Date: 20200122
  Transmission Date: 20200409
  Serious: Yes (Hospitalization, Other)
  Sender: FDA-Public Use
  Company Number: US-009507513-1911USA009807

PATIENT
  Age: 70 Year
  Sex: Female

DRUGS (1)
  1. KEYTRUDA [Suspect]
     Active Substance: PEMBROLIZUMAB
     Indication: GENITAL NEOPLASM MALIGNANT FEMALE
     Dosage: 9 CYCLES OF KEYTRUDA, CYCLICAL, ROUTE OF ADMINISTRATION-INFUSED
     Dates: end: 201908

REACTIONS (5)
  - Myxoedema [Unknown]
  - Pleural effusion [Unknown]
  - Thyroid hormones increased [Unknown]
  - Ascites [Unknown]
  - Pericardial effusion [Unknown]

NARRATIVE: CASE EVENT DATE: 2019
